FAERS Safety Report 14669968 (Version 3)
Quarter: 2022Q2

REPORT INFORMATION
  Report Type: Spontaneous
  Country: JP (occurrence: JP)
  Receive Date: 20180322
  Receipt Date: 20220420
  Transmission Date: 20220721
  Serious: Yes (Death, Hospitalization, Other)
  Sender: FDA-Public Use
  Company Number: JP-JT-EVA201800671GILEAD-001

PATIENT
  Age: 51 Year
  Sex: Male

DRUGS (3)
  1. EMTRICITABINE [Suspect]
     Active Substance: EMTRICITABINE
     Indication: HIV infection
     Dosage: UNK
     Route: 048
  2. NORVIR [Concomitant]
     Active Substance: RITONAVIR
     Indication: HIV infection
     Route: 048
  3. REYATAZ [Concomitant]
     Active Substance: ATAZANAVIR SULFATE
     Indication: HIV infection
     Dosage: UNK
     Route: 048

REACTIONS (6)
  - Laryngeal cancer [Fatal]
  - Metastases to lymph nodes [Unknown]
  - Metastases to lung [Unknown]
  - Drug resistance [Unknown]
  - Mucosal inflammation [Unknown]
  - Dermatitis [Unknown]
